FAERS Safety Report 12529294 (Version 4)
Quarter: 2018Q2

REPORT INFORMATION
  Report Type: Report from Study
  Country: GB (occurrence: GB)
  Receive Date: 20160705
  Receipt Date: 20180406
  Transmission Date: 20180711
  Serious: Yes (Death)
  Sender: FDA-Public Use
  Company Number: GB-AMGEN-GBRNI2016086954

PATIENT
  Age: 92 Year
  Sex: Female

DRUGS (1)
  1. ETANERCEPT [Suspect]
     Active Substance: ETANERCEPT
     Indication: RHEUMATOID ARTHRITIS
     Dosage: 25 MG, UNK
     Route: 065

REACTIONS (5)
  - Urosepsis [Fatal]
  - Ischaemic stroke [Fatal]
  - Femoral neck fracture [Fatal]
  - Cerebrovascular disorder [Fatal]
  - Lower respiratory tract infection [Fatal]
